FAERS Safety Report 7812041-2 (Version None)
Quarter: 2011Q4

REPORT INFORMATION
  Report Type: 
  Country: None (occurrence: None)
  Receive Date: 20111011
  Receipt Date: 20111007
  Transmission Date: 20120403
  Serious: Yes (Hospitalization)
  Sender: FDA-Public Use
  Company Number: SP04607

PATIENT
  Age: 72 Year
  Sex: Female

DRUGS (18)
  1. TEMISARTAN [Concomitant]
  2. VISICOL [Suspect]
     Indication: BOWEL PREPARATION
     Dosage: (50 GM), ORAL
     Route: 048
     Dates: start: 20110603, end: 20110603
  3. BETAHISTINE MESILATE [Concomitant]
  4. FEXOFENADINE [Concomitant]
  5. SODIUM PICOSULFATE  HYDRATE [Concomitant]
  6. PRAVASTATIN [Concomitant]
  7. TIZANIDINE HCL [Concomitant]
  8. AMLODIPINE [Concomitant]
  9. SENNOSIDE [Concomitant]
  10. TOFISOPAM [Concomitant]
  11. LANSOPRAZOLE [Concomitant]
  12. CARVEDILOL [Concomitant]
  13. TRIAZOLAM [Concomitant]
  14. KETOPROFEN [Concomitant]
  15. PERINDOPRIL ERBUMINE [Concomitant]
  16. METOCLOPRAMIDE [Concomitant]
  17. MAGNESIUM CITRATE [Concomitant]
  18. TOPRIDE [Concomitant]

REACTIONS (6)
  - ABASIA [None]
  - MALAISE [None]
  - BLOOD PRESSURE DECREASED [None]
  - RASH [None]
  - RENAL FAILURE [None]
  - URTICARIA [None]
